FAERS Safety Report 9741423 (Version 1)
Quarter: 2013Q4

REPORT INFORMATION
  Report Type: Spontaneous
  Country: JP (occurrence: JP)
  Receive Date: 20131209
  Receipt Date: 20131209
  Transmission Date: 20140711
  Serious: Yes (Hospitalization, Other)
  Sender: FDA-Public Use
  Company Number: PHHY2013JP142620

PATIENT
  Age: 74 Year
  Sex: Male

DRUGS (2)
  1. ZOMETA [Suspect]
     Indication: PROSTATE CANCER
     Dosage: UNK UKN, UNK
     Route: 041
  2. ZOMETA [Suspect]
     Indication: OFF LABEL USE

REACTIONS (11)
  - Interstitial lung disease [Unknown]
  - Osteonecrosis of jaw [Unknown]
  - Femur fracture [Unknown]
  - Pain in extremity [Unknown]
  - Periorbital oedema [Unknown]
  - Gait disturbance [Unknown]
  - Abasia [Unknown]
  - Arthralgia [Unknown]
  - Dyspnoea [Unknown]
  - Pyrexia [Unknown]
  - Chest pain [Unknown]
